FAERS Safety Report 17881163 (Version 8)
Quarter: 2022Q3

REPORT INFORMATION
  Report Type: Report from Study
  Country: TW (occurrence: None)
  Receive Date: 20200610
  Receipt Date: 20220907
  Transmission Date: 20221027
  Serious: Yes (Hospitalization)
  Sender: FDA-Public Use
  Company Number: TW-ROCHE-2555021

PATIENT
  Age: 58 Year
  Sex: Female
  Weight: 51 kg

DRUGS (112)
  1. ATEZOLIZUMAB [Suspect]
     Active Substance: ATEZOLIZUMAB
     Indication: Triple negative breast cancer
     Dosage: DATE OF MOST RECENT DOSE OF ATEZOLIZUMAB PRIOR TO AE ONSET: 03/FEB/2020
     Route: 041
     Dates: start: 20190826
  2. PACLITAXEL [Suspect]
     Active Substance: PACLITAXEL
     Indication: Triple negative breast cancer
     Dosage: ON 18/NOV/2019, RECEIVED THE MOST RECENT DOSE OF NAB-PACLITAXEL (147 MG) PRIOR TO AE ONSET.
     Route: 042
     Dates: start: 20190826
  3. DOXORUBICIN [Suspect]
     Active Substance: DOXORUBICIN
     Indication: Triple negative breast cancer
     Dosage: ON 03/FEB/2020 RECEIVED THE MOST RECENT DOSE OF DOXORUBICIN (86 MG) PRIOR TO EVENT ONSET.
     Route: 042
     Dates: start: 20191223
  4. CYCLOPHOSPHAMIDE [Suspect]
     Active Substance: CYCLOPHOSPHAMIDE
     Indication: Triple negative breast cancer
     Dosage: ON 03/FEB/2020, RECEIVED THE MOST RECENT DOSE OF CYCLOPHOSPHAMIDE (858 MG) PRIOR TO EVENT ONSRT.
     Route: 042
     Dates: start: 20191223
  5. HEPARIN LOCK FLUSH [Concomitant]
     Active Substance: HEPARIN SODIUM
     Indication: Prophylaxis
     Route: 042
     Dates: start: 20190822
  6. RABEPRAZOLE [Concomitant]
     Active Substance: RABEPRAZOLE
     Indication: Abdominal pain upper
     Route: 048
     Dates: start: 20190902, end: 20200218
  7. LORAZEPAM [Concomitant]
     Active Substance: LORAZEPAM
     Indication: Insomnia
     Route: 048
     Dates: start: 20190923, end: 20200218
  8. DIETARY SUPPLEMENT\HERBALS\MILK THISTLE [Concomitant]
     Active Substance: DIETARY SUPPLEMENT\HERBALS\MILK THISTLE
     Indication: Alanine aminotransferase increased
     Route: 048
     Dates: start: 20191025, end: 20200218
  9. DIETARY SUPPLEMENT\HERBALS\MILK THISTLE [Concomitant]
     Active Substance: DIETARY SUPPLEMENT\HERBALS\MILK THISTLE
     Indication: Aspartate aminotransferase increased
     Route: 048
     Dates: start: 20200414, end: 20200421
  10. PREDNISOLONE [Concomitant]
     Active Substance: PREDNISOLONE
     Indication: Alanine aminotransferase increased
     Route: 048
     Dates: start: 20191202, end: 20191202
  11. PREDNISOLONE [Concomitant]
     Active Substance: PREDNISOLONE
     Indication: Prophylaxis
     Route: 048
     Dates: start: 20200203, end: 20200209
  12. METOCLOPRAMIDE [Concomitant]
     Active Substance: METOCLOPRAMIDE
     Indication: Prophylaxis
     Route: 048
     Dates: start: 20200106
  13. GRANISETRON [Concomitant]
     Active Substance: GRANISETRON
     Indication: Prophylaxis
     Route: 062
     Dates: start: 20200119, end: 20200125
  14. GRANISETRON [Concomitant]
     Active Substance: GRANISETRON
     Indication: Nausea
     Route: 062
     Dates: start: 20200202, end: 20200208
  15. GRANISETRON [Concomitant]
     Active Substance: GRANISETRON
     Indication: Vomiting
  16. APREPITANT [Concomitant]
     Active Substance: APREPITANT
     Indication: Prophylaxis
     Route: 048
     Dates: start: 20200120, end: 20200120
  17. APREPITANT [Concomitant]
     Active Substance: APREPITANT
     Indication: Prophylaxis of nausea and vomiting
     Route: 048
     Dates: start: 20200121, end: 20200122
  18. APREPITANT [Concomitant]
     Active Substance: APREPITANT
     Indication: Vomiting
     Route: 048
     Dates: start: 20200203, end: 20200203
  19. APREPITANT [Concomitant]
     Active Substance: APREPITANT
     Indication: Nausea
     Route: 048
     Dates: start: 20200204, end: 20200205
  20. PALONOSETRON [Concomitant]
     Active Substance: PALONOSETRON
     Indication: Prophylaxis
     Route: 042
     Dates: start: 20200120, end: 20200120
  21. PALONOSETRON [Concomitant]
     Active Substance: PALONOSETRON
     Route: 042
     Dates: start: 20200203, end: 20200203
  22. DEXAMETHASONE PHOSPHATE [Concomitant]
     Active Substance: DEXAMETHASONE PHOSPHATE
     Indication: Allergy prophylaxis
     Route: 042
     Dates: start: 20200120, end: 20200120
  23. DEXAMETHASONE PHOSPHATE [Concomitant]
     Active Substance: DEXAMETHASONE PHOSPHATE
     Route: 042
     Dates: start: 20200203, end: 20200203
  24. NAPROXEN [Concomitant]
     Active Substance: NAPROXEN
     Indication: Pain prophylaxis
     Route: 048
     Dates: start: 20200121, end: 20200123
  25. NAPROXEN [Concomitant]
     Active Substance: NAPROXEN
     Route: 048
     Dates: start: 20200205, end: 20200207
  26. TRIAMCINOLONE [Concomitant]
     Active Substance: TRIAMCINOLONE
     Indication: Mouth ulceration
     Dosage: IN ORABASE
     Route: 061
     Dates: start: 20200120, end: 20200218
  27. TRIAMCINOLONE [Concomitant]
     Active Substance: TRIAMCINOLONE
     Dosage: IN ORABASE
     Route: 061
     Dates: start: 20200222, end: 20200222
  28. METHOCARBAMOL [Concomitant]
     Active Substance: METHOCARBAMOL
     Indication: Back pain
     Route: 048
     Dates: start: 20200120, end: 20200202
  29. ACYCLOVIR [Concomitant]
     Active Substance: ACYCLOVIR
     Indication: Herpes virus infection
     Route: 061
     Dates: start: 20200203
  30. PALONOSETRON [Concomitant]
     Active Substance: PALONOSETRON
     Indication: Prophylaxis of nausea and vomiting
     Dosage: 03 FEB 2020
     Route: 042
     Dates: start: 20200203, end: 20200203
  31. PROCHLORPERAZINE [Concomitant]
     Active Substance: PROCHLORPERAZINE
     Route: 030
     Dates: start: 20200220, end: 20200221
  32. MEGESTROL [Concomitant]
     Active Substance: MEGESTROL
     Indication: Decreased appetite
     Route: 048
     Dates: start: 20200220, end: 20200221
  33. AMINO ACIDS\DEXTROSE\ELECTROLYTES NOS\SOYBEAN OIL [Concomitant]
     Active Substance: AMINO ACIDS\DEXTROSE\ELECTROLYTES NOS\SOYBEAN OIL
     Indication: Decreased appetite
     Route: 042
     Dates: start: 20200221, end: 20200221
  34. POTASSIUM GLUCONATE [Concomitant]
     Active Substance: POTASSIUM GLUCONATE
     Indication: Hypokalaemia
     Route: 048
     Dates: start: 20200221, end: 20200221
  35. POTASSIUM GLUCONATE [Concomitant]
     Active Substance: POTASSIUM GLUCONATE
     Route: 048
     Dates: start: 20200226, end: 20200227
  36. POTASSIUM GLUCONATE [Concomitant]
     Active Substance: POTASSIUM GLUCONATE
     Route: 048
     Dates: start: 20200316, end: 20200329
  37. POTASSIUM GLUCONATE [Concomitant]
     Active Substance: POTASSIUM GLUCONATE
     Route: 048
     Dates: start: 20200401, end: 20200408
  38. POTASSIUM GLUCONATE [Concomitant]
     Active Substance: POTASSIUM GLUCONATE
     Route: 048
     Dates: start: 20200420, end: 20200424
  39. POTASSIUM GLUCONATE [Concomitant]
     Active Substance: POTASSIUM GLUCONATE
     Route: 048
     Dates: start: 20200511
  40. POTASSIUM GLUCONATE [Concomitant]
     Active Substance: POTASSIUM GLUCONATE
     Route: 048
     Dates: start: 20200502, end: 20200503
  41. LEVOFLOXACIN [Concomitant]
     Active Substance: LEVOFLOXACIN
     Indication: Pneumonitis
     Route: 042
     Dates: start: 20200221, end: 20200325
  42. LEVOFLOXACIN [Concomitant]
     Active Substance: LEVOFLOXACIN
     Route: 042
     Dates: start: 20200416, end: 20200420
  43. MIDAZOLAM [Concomitant]
     Active Substance: MIDAZOLAM
     Indication: Mouth ulceration
     Route: 042
     Dates: start: 20200221, end: 20200221
  44. MIDAZOLAM [Concomitant]
     Active Substance: MIDAZOLAM
     Route: 042
     Dates: start: 20200221
  45. MIDAZOLAM [Concomitant]
     Active Substance: MIDAZOLAM
     Route: 061
     Dates: start: 20200222
  46. ROCURONIUM [Concomitant]
     Active Substance: ROCURONIUM BROMIDE
     Indication: Prophylaxis
     Route: 042
     Dates: start: 20200221, end: 20200221
  47. LIDOCAINE HYDROCHLORIDE [Concomitant]
     Active Substance: LIDOCAINE HYDROCHLORIDE
     Indication: Prophylaxis
     Dates: start: 20200221, end: 20200221
  48. LIDOCAINE HYDROCHLORIDE [Concomitant]
     Active Substance: LIDOCAINE HYDROCHLORIDE
     Dates: start: 20200221, end: 20200222
  49. LIDOCAINE HYDROCHLORIDE [Concomitant]
     Active Substance: LIDOCAINE HYDROCHLORIDE
     Dates: start: 20200222, end: 20200222
  50. LIDOCAINE HYDROCHLORIDE [Concomitant]
     Active Substance: LIDOCAINE HYDROCHLORIDE
     Dates: start: 20200302, end: 20200302
  51. LIDOCAINE HYDROCHLORIDE [Concomitant]
     Active Substance: LIDOCAINE HYDROCHLORIDE
     Route: 042
     Dates: start: 20200316, end: 20200316
  52. LIDOCAINE HYDROCHLORIDE [Concomitant]
     Active Substance: LIDOCAINE HYDROCHLORIDE
     Route: 042
     Dates: start: 20200319, end: 20200408
  53. LIDOCAINE HYDROCHLORIDE [Concomitant]
     Active Substance: LIDOCAINE HYDROCHLORIDE
     Route: 042
     Dates: start: 20200331, end: 20200331
  54. LIDOCAINE HYDROCHLORIDE [Concomitant]
     Active Substance: LIDOCAINE HYDROCHLORIDE
     Route: 042
     Dates: start: 20200403
  55. KCL [Concomitant]
     Active Substance: POTASSIUM CHLORIDE
     Indication: Hypokalaemia
     Route: 042
     Dates: start: 20200221, end: 20200224
  56. KCL [Concomitant]
     Active Substance: POTASSIUM CHLORIDE
     Route: 042
     Dates: start: 20200401, end: 20200402
  57. KCL [Concomitant]
     Active Substance: POTASSIUM CHLORIDE
     Route: 042
     Dates: start: 20200406, end: 20200406
  58. KCL [Concomitant]
     Active Substance: POTASSIUM CHLORIDE
     Route: 042
     Dates: start: 20200413
  59. GENTAMICIN [Concomitant]
     Active Substance: GENTAMICIN
     Indication: Prophylaxis
     Route: 061
     Dates: start: 20200222
  60. CISATRACURIUM [Concomitant]
     Active Substance: CISATRACURIUM
     Indication: Prophylaxis
     Dosage: 10 OTHER
     Route: 042
     Dates: start: 20200222
  61. NITROFURAZONE [Concomitant]
     Active Substance: NITROFURAZONE
     Indication: Prophylaxis
     Dosage: GAUZE
     Dates: start: 20200222
  62. NOREPINEPHRINE [Concomitant]
     Active Substance: NOREPINEPHRINE
     Indication: Hypotension
     Route: 042
     Dates: start: 20200222, end: 20200229
  63. TETRASTARCH [Concomitant]
     Indication: Hypotension
     Route: 042
     Dates: start: 20200223, end: 20200223
  64. FENTANYL CITRATE [Concomitant]
     Active Substance: FENTANYL CITRATE
     Indication: Pain
     Dosage: PRN (AS NEEDED)
     Route: 048
     Dates: start: 20200223, end: 20200229
  65. FENTANYL CITRATE [Concomitant]
     Active Substance: FENTANYL CITRATE
     Dosage: PRN (AS NEEDED)
     Route: 048
     Dates: start: 20200229, end: 20200409
  66. OSELTAMIVIR [Concomitant]
     Active Substance: OSELTAMIVIR
     Indication: Pyrexia
     Route: 048
     Dates: start: 20200223, end: 20200228
  67. ANIDULAFUNGIN [Concomitant]
     Active Substance: ANIDULAFUNGIN
     Indication: Pyrexia
     Route: 042
     Dates: start: 20200223, end: 20200223
  68. ANIDULAFUNGIN [Concomitant]
     Active Substance: ANIDULAFUNGIN
     Route: 042
     Dates: start: 20200223
  69. ANIDULAFUNGIN [Concomitant]
     Active Substance: ANIDULAFUNGIN
     Route: 042
     Dates: start: 20200330, end: 20200406
  70. POTASSIUM CHLORIDE [Concomitant]
     Active Substance: POTASSIUM CHLORIDE
     Indication: Hypokalaemia
     Route: 042
     Dates: start: 20200224, end: 20200226
  71. POTASSIUM CHLORIDE [Concomitant]
     Active Substance: POTASSIUM CHLORIDE
     Route: 042
     Dates: start: 20200420, end: 20200420
  72. ALBUMIN HUMAN [Concomitant]
     Active Substance: ALBUMIN HUMAN
     Indication: Hypoalbuminaemia
     Route: 042
     Dates: start: 20200224, end: 20200227
  73. ALBUMIN HUMAN [Concomitant]
     Active Substance: ALBUMIN HUMAN
     Route: 042
     Dates: start: 20200306, end: 20200308
  74. ALBUMIN HUMAN [Concomitant]
     Active Substance: ALBUMIN HUMAN
     Route: 042
     Dates: start: 20200317, end: 20200322
  75. ALBUMIN HUMAN [Concomitant]
     Active Substance: ALBUMIN HUMAN
     Route: 042
     Dates: start: 20200330, end: 20200401
  76. ALBUMIN HUMAN [Concomitant]
     Active Substance: ALBUMIN HUMAN
     Route: 042
     Dates: start: 20200414, end: 20200415
  77. ALBUMIN HUMAN [Concomitant]
     Active Substance: ALBUMIN HUMAN
     Route: 042
     Dates: start: 20200424, end: 20200425
  78. ALBUMIN HUMAN [Concomitant]
     Active Substance: ALBUMIN HUMAN
     Dosage: PRN
     Route: 042
     Dates: start: 20200309, end: 20200312
  79. FUROSEMIDE [Concomitant]
     Active Substance: FUROSEMIDE
     Indication: Pulmonary oedema
     Route: 042
     Dates: start: 20200224, end: 20200224
  80. FUROSEMIDE [Concomitant]
     Active Substance: FUROSEMIDE
     Route: 042
     Dates: start: 20200226, end: 20200229
  81. FUROSEMIDE [Concomitant]
     Active Substance: FUROSEMIDE
     Dosage: PRN (AS NEEDED)
     Route: 042
     Dates: start: 20200301, end: 20200301
  82. FUROSEMIDE [Concomitant]
     Active Substance: FUROSEMIDE
     Dosage: PRN (AS NEEDED)
     Route: 042
     Dates: start: 20200306, end: 20200306
  83. FUROSEMIDE [Concomitant]
     Active Substance: FUROSEMIDE
     Dosage: PRN (AS NEEDED)
     Route: 042
     Dates: start: 20200307, end: 20200312
  84. FUROSEMIDE [Concomitant]
     Active Substance: FUROSEMIDE
     Route: 042
     Dates: start: 20200316, end: 20200322
  85. COTRIMOXAZOLE [Concomitant]
     Active Substance: SULFAMETHOXAZOLE\TRIMETHOPRIM
     Indication: Pneumocystis jirovecii pneumonia
     Route: 042
     Dates: start: 20200227
  86. ESOMEPRAZOLE [Concomitant]
     Active Substance: ESOMEPRAZOLE
     Indication: Prophylaxis
     Route: 042
     Dates: start: 20200227
  87. ESOMEPRAZOLE [Concomitant]
     Active Substance: ESOMEPRAZOLE
     Route: 042
     Dates: start: 20200311, end: 20200318
  88. POTASSIUM GLUCONATE [Concomitant]
     Active Substance: POTASSIUM GLUCONATE
     Indication: Hypokalaemia
     Route: 048
     Dates: start: 20200228, end: 20200302
  89. POTASSIUM GLUCONATE [Concomitant]
     Active Substance: POTASSIUM GLUCONATE
     Route: 048
     Dates: start: 20200226, end: 20200227
  90. POTASSIUM GLUCONATE [Concomitant]
     Active Substance: POTASSIUM GLUCONATE
     Route: 048
     Dates: start: 20200414, end: 20200415
  91. POTASSIUM GLUCONATE [Concomitant]
     Active Substance: POTASSIUM GLUCONATE
     Route: 048
     Dates: start: 20200311, end: 20200315
  92. SPIRONOLACTONE [Concomitant]
     Active Substance: SPIRONOLACTONE
     Indication: Hypokalaemia
     Route: 048
     Dates: start: 20200307, end: 20200315
  93. SPIRONOLACTONE [Concomitant]
     Active Substance: SPIRONOLACTONE
     Route: 048
     Dates: start: 20200316, end: 20200325
  94. TRANEXAMIC ACID [Concomitant]
     Active Substance: TRANEXAMIC ACID
     Route: 042
     Dates: start: 20200323, end: 20200325
  95. PANTOPRAZOLE [Concomitant]
     Active Substance: PANTOPRAZOLE
     Route: 042
     Dates: start: 20200319
  96. MONTMORILLONITE [Concomitant]
     Active Substance: MONTMORILLONITE
     Indication: Diarrhoea
     Route: 048
     Dates: start: 20200328, end: 20200330
  97. MONTMORILLONITE [Concomitant]
     Active Substance: MONTMORILLONITE
     Route: 048
     Dates: start: 20200410
  98. ACTRAPID [Concomitant]
     Active Substance: INSULIN HUMAN
     Indication: Hyperglycaemia
     Dosage: 10 UNIT
     Route: 058
     Dates: start: 20200327, end: 20200330
  99. ACTRAPID [Concomitant]
     Active Substance: INSULIN HUMAN
     Dosage: 5 UNIT
     Route: 058
     Dates: start: 20200330, end: 20200413
  100. ACTRAPID [Concomitant]
     Active Substance: INSULIN HUMAN
     Dosage: 4 UNIT
     Route: 058
     Dates: start: 20200414, end: 20200507
  101. NEOMYCIN;TYROTHRICIN [Concomitant]
     Indication: Dermatitis diaper
     Route: 061
     Dates: start: 20200331
  102. AMIKACIN [Concomitant]
     Active Substance: AMIKACIN
     Indication: Pneumonitis
     Route: 042
     Dates: start: 20200407, end: 20200413
  103. LANSOPRAZOLE [Concomitant]
     Active Substance: LANSOPRAZOLE
     Indication: Gastrointestinal haemorrhage
     Route: 048
     Dates: start: 20200409
  104. MORPHINE SULFATE [Concomitant]
     Active Substance: MORPHINE SULFATE
     Route: 048
     Dates: start: 20200409
  105. URSODIOL [Concomitant]
     Active Substance: URSODIOL
     Route: 048
     Dates: start: 20200421, end: 20200507
  106. CODEINE [Concomitant]
     Active Substance: CODEINE
     Indication: Pain prophylaxis
     Dosage: PRN AS NEEDED
     Route: 030
     Dates: start: 20200501, end: 20200501
  107. ZINC OXIDE [Concomitant]
     Active Substance: ZINC OXIDE
     Indication: Dermatitis diaper
     Dosage: 28.4 (OTHER)
     Route: 061
     Dates: start: 20200309, end: 20200312
  108. BALANCED SALT SOLUTION [Concomitant]
     Active Substance: CALCIUM CHLORIDE\MAGNESIUM CHLORIDE\POTASSIUM CHLORIDE\SODIUM ACETATE\SODIUM CHLORIDE\SODIUM CITRATE
     Indication: Eye swelling
     Dates: start: 20200311, end: 20200408
  109. BALANCED SALT SOLUTION [Concomitant]
     Active Substance: CALCIUM CHLORIDE\MAGNESIUM CHLORIDE\POTASSIUM CHLORIDE\SODIUM ACETATE\SODIUM CHLORIDE\SODIUM CITRATE
     Indication: Erythema
  110. TOBRADEX [Concomitant]
     Active Substance: DEXAMETHASONE\TOBRAMYCIN
     Indication: Conjunctival haemorrhage
     Dosage: 1
     Route: 061
     Dates: start: 20200311, end: 20200408
  111. FUROSEMIDE [Concomitant]
     Active Substance: FUROSEMIDE
     Route: 042
     Dates: start: 20200315, end: 20200315
  112. POTASSIUM GLUCONATE [Concomitant]
     Active Substance: POTASSIUM GLUCONATE
     Indication: Hypokalaemia
     Route: 048
     Dates: start: 20200316, end: 20200329

REACTIONS (7)
  - Pneumocystis jirovecii pneumonia [Recovered/Resolved]
  - Anaemia [Recovered/Resolved]
  - Pyrexia [Recovered/Resolved]
  - Pneumonitis [Recovered/Resolved]
  - Respiratory failure [Recovered/Resolved]
  - Pneumothorax [Recovered/Resolved]
  - Cytomegalovirus hepatitis [Recovered/Resolved]

NARRATIVE: CASE EVENT DATE: 20200219
